FAERS Safety Report 20912715 (Version 1)
Quarter: 2022Q2

REPORT INFORMATION
  Report Type: Spontaneous
  Country: NL (occurrence: NL)
  Receive Date: 20220603
  Receipt Date: 20220603
  Transmission Date: 20220721
  Serious: Yes (Other)
  Sender: FDA-Public Use
  Company Number: None

PATIENT
  Age: 59 Year
  Sex: Female
  Weight: 85 kg

DRUGS (8)
  1. METHOTREXATE [Suspect]
     Active Substance: METHOTREXATE
     Indication: Rheumatoid arthritis
     Dosage: 25MG/WK, BRAND NAME NOT SPECIFIED. UNIT STRENGTH : 2.5 MG, UNIT DOSE: 25 MG, FREQUENCY TIME : 1 WEEK
     Route: 065
     Dates: start: 20180226, end: 20220501
  2. DULOXETINE [Concomitant]
     Active Substance: DULOXETINE
     Dosage: , 30 MG (MILLIGRAM), MSR/ BRAND NAME NOT SPECIFIED, STRENGTH : 30 MG , THERAPY START DATE  AND  THER
  3. IRBESARTAN [Concomitant]
     Active Substance: IRBESARTAN
     Dosage: 75 MG (MILLIGRAM), STRENGTH : 75 MG, BRAND NAME NOT SPECIFIED, THERAPY START DATE  AND  THERAPY END
  4. FEXOFENADINE [Concomitant]
     Active Substance: FEXOFENADINE HYDROCHLORIDE
     Dosage: 180 MG (MILLIGRAM),  BRAND NAME NOT SPECIFIED, STRENGTH : 180 MG,THERAPY START DATE  AND  THERAPY EN
  5. PANTOPRAZOLE SODIUM [Concomitant]
     Active Substance: PANTOPRAZOLE SODIUM
     Dosage: 20 MG (MILLIGRAM), STRENGTH : 20 MG ,MSR/ PANTOZOL TABLET MSR 20MG, THERAPY START DATE  AND  THERAP
  6. FOLIC ACID [Concomitant]
     Active Substance: FOLIC ACID
     Dosage: 5 MG (MILLIGRAM),  BRAND NAME NOT SPECIFIED, STRENGTH : 5 MG , THERAPY START DATE  AND  THERAPY END
  7. ATORVASTATIN [Concomitant]
     Active Substance: ATORVASTATIN
     Dosage: 20 MG (MILLIGRAM), STRENGTH : 20 MG , BRAND NAME NOT SPECIFIED,THERAPY START DATE  AND  THERAPY END
  8. HYDROXYCHLOROQUINE [Concomitant]
     Active Substance: HYDROXYCHLOROQUINE
     Dosage: 200 MG (MILLIGRAM), STRENGTH : 200 MG,  BRAND NAME NOT SPECIFIED, THERAPY START DATE  AND  THERAPY

REACTIONS (1)
  - Diffuse large B-cell lymphoma [Not Recovered/Not Resolved]

NARRATIVE: CASE EVENT DATE: 20220401
